FAERS Safety Report 5194074-0 (Version None)
Quarter: 2006Q4

REPORT INFORMATION
  Report Type: 
  Country: None (occurrence: None)
  Receive Date: 20061226
  Receipt Date: 20061219
  Transmission Date: 20070319
  Serious: Yes (Other)
  Sender: FDA-Public Use
  Company Number: FACT0600457

PATIENT
  Age: 46 Year
  Sex: Male
  Weight: 72.6 kg

DRUGS (1)
  1. FACTIVE [Suspect]
     Indication: RESPIRATORY TRACT INFECTION BACTERIAL
     Dosage: 320 MG, QD, ORAL
     Route: 048
     Dates: start: 20061206, end: 20061212

REACTIONS (7)
  - DYSPNOEA [None]
  - PHARYNGEAL OEDEMA [None]
  - PURPURA [None]
  - RASH GENERALISED [None]
  - RASH PRURITIC [None]
  - SOMNOLENCE [None]
  - THROAT TIGHTNESS [None]
